FAERS Safety Report 10928490 (Version 1)
Quarter: 2015Q1

REPORT INFORMATION
  Report Type: Spontaneous
  Country: US (occurrence: None)
  Receive Date: 20150318
  Receipt Date: 20150318
  Transmission Date: 20150721
  Serious: Yes (Disabling)
  Sender: FDA-Public Use
  Company Number: None

PATIENT
  Age: 81 Year
  Sex: Female

DRUGS (9)
  1. MULTIVITAMIN [Concomitant]
     Active Substance: VITAMINS
  2. OMEGA 3 [Concomitant]
     Active Substance: OMEGA-3 FATTY ACIDS
  3. PROPRANOL [Concomitant]
     Active Substance: PROPRANOLOL HYDROCHLORIDE
  4. TYLENOL [Concomitant]
     Active Substance: ACETAMINOPHEN
  5. GABAPENTIN. [Suspect]
     Active Substance: GABAPENTIN
     Indication: BACK PAIN
     Dosage: 1 CAP FOR 3 D, THEN 1 CAPS Q 12 HRS, 1 CAP TID
     Route: 048
     Dates: start: 20141216, end: 20141224
  6. ESTRADIOL. [Concomitant]
     Active Substance: ESTRADIOL
  7. ASPIRIN. [Concomitant]
     Active Substance: ASPIRIN
  8. LEVOTHYROXINE [Concomitant]
     Active Substance: LEVOTHYROXINE
  9. MEDROXYPROGESTERONE [Concomitant]
     Active Substance: MEDROXYPROGESTERONE

REACTIONS (8)
  - Dizziness [None]
  - Somnolence [None]
  - Diplopia [None]
  - Cognitive disorder [None]
  - Nausea [None]
  - Disorientation [None]
  - Impaired driving ability [None]
  - Tremor [None]

NARRATIVE: CASE EVENT DATE: 20141216
